FAERS Safety Report 6865043-7 (Version None)
Quarter: 2010Q3

REPORT INFORMATION
  Report Type: 
  Country: None (occurrence: None)
  Receive Date: 20100721
  Receipt Date: 20100707
  Transmission Date: 20110219
  Serious: Yes (Other)
  Sender: FDA-Public Use
  Company Number: FR-MYLANLABS-2010S1012016

PATIENT
  Age: 30 Year
  Sex: Female

DRUGS (2)
  1. ACYCLOVIR [Suspect]
     Indication: MENINGITIS
     Dosage: 15 MG/KG EVERY 8 HOURS
     Route: 041
  2. SIBUTRAMINE [Concomitant]

REACTIONS (2)
  - CRYSTALLURIA [None]
  - RENAL FAILURE ACUTE [None]
